FAERS Safety Report 24060138 (Version 2)
Quarter: 2024Q3

REPORT INFORMATION
  Report Type: Spontaneous
  Country: US (occurrence: US)
  Receive Date: 20240708
  Receipt Date: 20240930
  Transmission Date: 20241016
  Serious: No
  Sender: PAREXEL
  Company Number: US Coherus Biosciences INC -2024-COH-US000283

PATIENT

DRUGS (1)
  1. YUSIMRY [Suspect]
     Active Substance: ADALIMUMAB-AQVH
     Indication: Product used for unknown indication
     Dosage: 40 MG, 1/WEEK
     Route: 058
     Dates: start: 20240423

REACTIONS (2)
  - Accidental exposure to product [Recovered/Resolved]
  - Device malfunction [Recovered/Resolved]

NARRATIVE: CASE EVENT DATE: 20240423
